FAERS Safety Report 25642836 (Version 1)
Quarter: 2025Q3

REPORT INFORMATION
  Report Type: Report from Study
  Country: US (occurrence: US)
  Receive Date: 20250805
  Receipt Date: 20250805
  Transmission Date: 20251020
  Serious: Yes (Other)
  Sender: Haleon PLC
  Company Number: US-HALEON-2255512

PATIENT
  Sex: Male
  Weight: 8.618 kg

DRUGS (11)
  1. ADVIL [Suspect]
     Active Substance: IBUPROFEN
     Indication: Migraine
     Route: 064
  2. LIDOCAINE [Suspect]
     Active Substance: LIDOCAINE
     Indication: Migraine
     Route: 064
     Dates: start: 20240118
  3. NURTEC ODT [Suspect]
     Active Substance: RIMEGEPANT SULFATE
     Indication: Migraine
     Route: 064
  4. NURTEC ODT [Suspect]
     Active Substance: RIMEGEPANT SULFATE
     Dosage: FREQUENCY: QOD
     Route: 064
     Dates: end: 20240118
  5. PROPRANOLOL [Suspect]
     Active Substance: PROPRANOLOL HYDROCHLORIDE
     Indication: Migraine
     Dosage: DOSE: 20-30 MG?FREQUENCY: BID
     Route: 064
     Dates: start: 20240118
  6. MAXALT [Suspect]
     Active Substance: RIZATRIPTAN BENZOATE
     Indication: Migraine
     Route: 064
  7. TYLENOL [Suspect]
     Active Substance: ACETAMINOPHEN
     Indication: Migraine
     Route: 064
  8. FROVATRIPTAN [Suspect]
     Active Substance: FROVATRIPTAN
     Indication: Migraine
     Route: 064
  9. BOTOX [Suspect]
     Active Substance: ONABOTULINUMTOXINA
     Indication: Migraine
     Route: 064
     Dates: start: 20231016
  10. AMITRIPTYLINE [Suspect]
     Active Substance: AMITRIPTYLINE
     Indication: Migraine
     Route: 064
     Dates: start: 20231115
  11. LOVENOX [Concomitant]
     Active Substance: ENOXAPARIN SODIUM
     Indication: Factor V Leiden mutation
     Route: 058

REACTIONS (2)
  - Hypokinesia [Not Recovered/Not Resolved]
  - Foetal exposure during pregnancy [Unknown]

NARRATIVE: CASE EVENT DATE: 20250116
